FAERS Safety Report 9268802 (Version 3)
Quarter: 2013Q2

REPORT INFORMATION
  Report Type: Report from Study
  Country: JP (occurrence: JP)
  Receive Date: 20130502
  Receipt Date: 20130610
  Transmission Date: 20140414
  Serious: Yes (Death)
  Sender: FDA-Public Use
  Company Number: JP-OTSUKA-JP-2013-10898

PATIENT
  Age: 61 Year
  Sex: Male
  Weight: 66.3 kg

DRUGS (12)
  1. SAMSCA [Suspect]
     Indication: FLUID RETENTION
     Dosage: 15 MG MILLIGRAM(S), QAM
     Route: 048
     Dates: start: 20121219, end: 20130302
  2. ALDACTONE A [Suspect]
     Indication: CARDIAC FAILURE
     Dosage: 25 MG MILLIGRAM(S), DAILY DOSE
     Route: 048
  3. COVERSYL [Concomitant]
     Indication: CARDIAC FAILURE
     Dosage: 2 MG MILLIGRAM(S), DAILY DOSE
     Route: 048
  4. ARTIST [Concomitant]
     Indication: CARDIAC FAILURE
     Dosage: 2.5 MG MILLIGRAM(S), DAILY DOSE
     Route: 048
  5. TAKEPRON [Concomitant]
     Indication: PROPHYLAXIS
     Dosage: 15 MG MILLIGRAM(S), DAILY DOSE
     Route: 048
  6. LIVALO [Concomitant]
     Dosage: 2 MG MILLIGRAM(S), DAILY DOSE
     Route: 048
  7. WARFARIN [Concomitant]
     Indication: PROPHYLAXIS
     Dosage: 1.5 MG MILLIGRAM(S), DAILY DOSE
     Route: 048
  8. NOVORAPID [Concomitant]
     Dosage: 44 IU, DAILY DOSE
     Route: 058
     Dates: start: 20121218, end: 20130112
  9. NOVORAPID [Concomitant]
     Dosage: 27 IU, DAILY DOSE
     Route: 058
     Dates: start: 20130113
  10. LEVEMIR [Concomitant]
     Dosage: 19 IU, DAILY DOSE
     Route: 058
     Dates: start: 20121218, end: 20130112
  11. LEVEMIR [Concomitant]
     Dosage: 4 IU, DAILY DOSE
     Route: 058
     Dates: start: 20130113
  12. HALFDIGOXIN [Concomitant]
     Indication: CARDIAC FAILURE
     Dosage: 0.125 MG MILLIGRAM(S), DAILY DOSE
     Route: 048
     Dates: start: 20121229, end: 20121231

REACTIONS (2)
  - Cardiac failure [Fatal]
  - Thirst [Recovered/Resolved]
